FAERS Safety Report 7880584-1 (Version None)
Quarter: 2011Q4

REPORT INFORMATION
  Report Type: 
  Country: None (occurrence: None)
  Receive Date: 20111101
  Receipt Date: 20101117
  Transmission Date: 20120403
  Serious: No
  Sender: FDA-Public Use
  Company Number: US-BAYER-201035159NA

PATIENT
  Age: 26 Year
  Sex: Male
  Weight: 68.027 kg

DRUGS (14)
  1. MEDROL [Concomitant]
     Dosage: DOSEPACK
     Dates: start: 20100927
  2. BENADRYL [Concomitant]
     Dates: start: 20100926
  3. NASONEX [Concomitant]
  4. OPTIVAR [Concomitant]
  5. MEDROL [Concomitant]
     Indication: PREMEDICATION
     Dosage: DOSEPAK
     Route: 048
     Dates: start: 20100924
  6. ZANTAC [Concomitant]
     Dates: start: 20100926
  7. BENADRYL [Concomitant]
     Dates: start: 20100927
  8. ULTRAVIST 150 [Suspect]
     Indication: COMPUTERISED TOMOGRAM ABDOMEN
  9. ALLEGRA [Concomitant]
  10. MEDROL [Concomitant]
     Dosage: DOSEPAK
     Dates: start: 20100926
  11. ZANTAC [Concomitant]
     Dates: start: 20100927
  12. ZANTAC [Concomitant]
     Indication: PREMEDICATION
     Dosage: UNK
     Dates: start: 20100924
  13. ULTRAVIST 150 [Suspect]
     Indication: POST PROCEDURAL COMPLICATION
     Dosage: 100 MG, ONCE
     Route: 042
     Dates: start: 20100927
  14. BENADRYL [Concomitant]
     Indication: PREMEDICATION
     Dosage: UNK
     Dates: start: 20100924

REACTIONS (4)
  - FLUSHING [None]
  - URTICARIA [None]
  - PRURITUS [None]
  - NASAL CONGESTION [None]
